FAERS Safety Report 4578566-0 (Version None)
Quarter: 2005Q1

REPORT INFORMATION
  Report Type: 
  Country: None (occurrence: None)
  Receive Date: 20050207
  Receipt Date: 20050207
  Transmission Date: 20050727
  Serious: Yes (Life-Threatening)
  Sender: FDA-Public Use
  Company Number: None

PATIENT
  Age: 65 Year

DRUGS (1)
  1. COUMADIN [Suspect]
     Dosage: AS DIRECTED

REACTIONS (1)
  - INTERNATIONAL NORMALISED RATIO DECREASED [None]
